FAERS Safety Report 4744403-4 (Version None)
Quarter: 2005Q3

REPORT INFORMATION
  Report Type: 
  Country: None (occurrence: None)
  Receive Date: 20050809
  Receipt Date: 20050801
  Transmission Date: 20060218
  Serious: Yes (Other)
  Sender: FDA-Public Use
  Company Number: 2005062785

PATIENT
  Age: 32 Year
  Sex: Female

DRUGS (2)
  1. BEXTRA [Suspect]
     Indication: PROCEDURAL PAIN
     Dosage: 20 MG (10 MG, 2 IN 1 D), ORAL
     Route: 048
     Dates: start: 20030909
  2. ATIVAN [Concomitant]

REACTIONS (1)
  - CHOLESTASIS [None]
